FAERS Safety Report 24660325 (Version 7)
Quarter: 2025Q1

REPORT INFORMATION
  Report Type: Spontaneous
  Country: JP (occurrence: JP)
  Receive Date: 20241125
  Receipt Date: 20250227
  Transmission Date: 20250409
  Serious: Yes (Hospitalization, Disabling, Other)
  Sender: PFIZER
  Company Number: JP-PFIZER INC-PV202400152608

PATIENT
  Age: 81 Year
  Sex: Female
  Weight: 51.9 kg

DRUGS (13)
  1. ELIQUIS [Suspect]
     Active Substance: APIXABAN
     Indication: Cerebrovascular accident prophylaxis
     Dosage: 2.5 MG, 2X/DAY
     Route: 048
     Dates: start: 202305
  2. ELIQUIS [Suspect]
     Active Substance: APIXABAN
     Indication: Cerebral artery embolism
  3. ELIQUIS [Suspect]
     Active Substance: APIXABAN
     Indication: Atrial fibrillation
  4. RHEUMATREX [Suspect]
     Active Substance: METHOTREXATE SODIUM
     Indication: Rheumatoid arthritis
     Dosage: 3 CAPSULES ON MONDAY AND 2 CAPSULES ON TUESDAY; DURATION OF ADMINISTRATION: 10 YEAR OR MORE
     Route: 048
     Dates: end: 20241112
  5. CELECOXIB [Concomitant]
     Active Substance: CELECOXIB
     Indication: Pain
     Dosage: 100 MG, 2X/DAY
     Route: 048
  6. REBAMIPIDE [Concomitant]
     Active Substance: REBAMIPIDE
     Indication: Gastrointestinal disorder prophylaxis
     Dosage: 100 MG, 2X/DAY
     Route: 048
  7. EPERISONE HYDROCHLORIDE [Concomitant]
     Active Substance: EPERISONE HYDROCHLORIDE
     Indication: Musculoskeletal stiffness
     Dosage: 50 MG, 2X/DAY
     Route: 048
  8. FOLIC ACID [Concomitant]
     Active Substance: FOLIC ACID
     Dosage: 1 DF/DAY, WEEKLY (ONLY FRIDAY)
     Route: 048
  9. GASTER [Concomitant]
     Active Substance: FAMOTIDINE
     Indication: Prophylaxis
     Dosage: 20 MG, 1X/DAY
     Route: 048
  10. FEXOFENADINE [FEXOFENADINE HYDROCHLORIDE] [Concomitant]
     Indication: Hypersensitivity
     Dosage: 60 MG, 2X/DAY
     Route: 048
  11. SODIUM HYALURONATE [Concomitant]
     Active Substance: HYALURONATE SODIUM
     Route: 031
  12. DIQUAS LX [Concomitant]
     Route: 031
  13. FLUOROMETHOLONE [Concomitant]
     Active Substance: FLUOROMETHOLONE
     Route: 031

REACTIONS (3)
  - Leukoencephalopathy [Unknown]
  - Thrombotic cerebral infarction [Recovered/Resolved]
  - Treatment noncompliance [Unknown]

NARRATIVE: CASE EVENT DATE: 20241111
